FAERS Safety Report 25205114 (Version 2)
Quarter: 2025Q2

REPORT INFORMATION
  Report Type: Report from Study
  Country: CN (occurrence: CN)
  Receive Date: 20250416
  Receipt Date: 20250425
  Transmission Date: 20250717
  Serious: No
  Sender: ABBVIE
  Company Number: CN-ABBVIE-5657732

PATIENT
  Age: 27 Year
  Sex: Female
  Weight: 42 kg

DRUGS (8)
  1. RINVOQ [Suspect]
     Active Substance: UPADACITINIB
     Indication: Dermatitis atopic
     Dosage: FORM STRENGTH: 15 MILLIGRAM
     Route: 048
     Dates: start: 20230517, end: 20231210
  2. RINVOQ [Suspect]
     Active Substance: UPADACITINIB
     Indication: Dermatitis atopic
     Dosage: FORM STRENGTH: 30 MILLIGRAM
     Route: 048
     Dates: start: 20230227, end: 20230321
  3. RINVOQ [Suspect]
     Active Substance: UPADACITINIB
     Indication: Dermatitis atopic
     Dosage: FORM STRENGTH: 30 MILLIGRAM
     Route: 048
     Dates: start: 20230322, end: 20230516
  4. RINVOQ [Suspect]
     Active Substance: UPADACITINIB
     Indication: Dermatitis atopic
     Route: 048
     Dates: start: 20231212, end: 20240225
  5. RINVOQ [Suspect]
     Active Substance: UPADACITINIB
     Indication: Dermatitis atopic
     Dosage: FORM STRENGTH: 15 MILLIGRAM
     Route: 048
     Dates: start: 20240226, end: 20250314
  6. Menthol;Phenol [Concomitant]
     Indication: Dermatitis atopic
     Dosage: APPROPRIATE AMOUNT
     Dates: start: 20230131
  7. TRETINOIN [Concomitant]
     Active Substance: TRETINOIN
     Indication: Dermatitis atopic
     Dosage: APPROPRIATE AMOUNT, LAST ADMIN DATE: 2022
     Dates: start: 20220729
  8. TRETINOIN [Concomitant]
     Active Substance: TRETINOIN
     Indication: Dermatitis atopic
     Dosage: APPROPRIATE AMOUNT
     Dates: start: 20220922

REACTIONS (13)
  - Anal inflammation [Recovering/Resolving]
  - Spinal osteoarthritis [Not Recovered/Not Resolved]
  - Hypercholesterolaemia [Not Recovered/Not Resolved]
  - Anisometropia [Recovering/Resolving]
  - Pollakiuria [Recovering/Resolving]
  - Hypomenorrhoea [Recovering/Resolving]
  - Anal pruritus [Recovering/Resolving]
  - Blood bilirubin increased [Recovered/Resolved]
  - Acne [Recovered/Resolved]
  - Haemorrhoids [Recovering/Resolving]
  - Menstruation irregular [Recovering/Resolving]
  - Sleep disorder [Recovering/Resolving]
  - Pigmentation disorder [Recovered/Resolved]

NARRATIVE: CASE EVENT DATE: 20231227
